FAERS Safety Report 5242583-8 (Version None)
Quarter: 2007Q1

REPORT INFORMATION
  Report Type: 
  Country: None (occurrence: None)
  Receive Date: 20070221
  Receipt Date: 20070209
  Transmission Date: 20070707
  Serious: Yes (Hospitalization)
  Sender: FDA-Public Use
  Company Number: GBWYE982429DEC06

PATIENT
  Sex: Male
  Weight: 90 kg

DRUGS (9)
  1. ENBREL [Suspect]
     Indication: RHEUMATOID ARTHRITIS
     Route: 058
     Dates: start: 20061205, end: 20061226
  2. METHOTREXATE [Suspect]
     Indication: RHEUMATOID ARTHRITIS
     Route: 058
     Dates: start: 20040101, end: 20070104
  3. PREDNISOLONE [Concomitant]
     Indication: RHEUMATOID ARTHRITIS
     Dosage: 10 MG EVERY 1 SEC
     Route: 048
  4. BISOPROLOL FUMARATE [Concomitant]
     Dosage: UNKNOWN
  5. ALENDRONATE SODIUM [Concomitant]
     Indication: PROPHYLAXIS
     Route: 048
     Dates: start: 20050101
  6. ADCAL D3 [Concomitant]
     Indication: PROPHYLAXIS
     Route: 048
     Dates: start: 20050101
  7. PRAVASTATIN [Concomitant]
     Indication: BLOOD CHOLESTEROL
     Route: 048
  8. PARACETAMOL [Concomitant]
     Dosage: UNKNOWN
  9. RISEDRONATE SODIUM [Concomitant]
     Dosage: UNKNOWN

REACTIONS (1)
  - PNEUMONIA [None]
